FAERS Safety Report 10653736 (Version 2)
Quarter: 2014Q4

REPORT INFORMATION
  Report Type: Spontaneous
  Country: US (occurrence: US)
  Receive Date: 20141216
  Receipt Date: 20141216
  Transmission Date: 20150529
  Serious: Yes (Hospitalization)
  Sender: FDA-Public Use
  Company Number: US-GILEAD-2014-0124567

PATIENT
  Age: 70 Year
  Sex: Female

DRUGS (10)
  1. LETAIRIS [Suspect]
     Active Substance: AMBRISENTAN
     Indication: PULMONARY HYPERTENSION
     Dosage: 10 MG, QD
     Route: 065
     Dates: start: 20140523
  2. POTASSIUM [Concomitant]
     Active Substance: POTASSIUM
  3. IMDUR [Concomitant]
     Active Substance: ISOSORBIDE MONONITRATE
  4. METOPROLOL [Concomitant]
     Active Substance: METOPROLOL
  5. ZITHROMAX [Concomitant]
     Active Substance: AZITHROMYCIN DIHYDRATE
  6. LASIX [Concomitant]
     Active Substance: FUROSEMIDE
  7. PROCARDIA [Concomitant]
     Active Substance: NIFEDIPINE
  8. SIMVASTATIN. [Concomitant]
     Active Substance: SIMVASTATIN
  9. PEPCID AC [Concomitant]
     Active Substance: FAMOTIDINE
  10. SPIRIVA [Concomitant]
     Active Substance: TIOTROPIUM BROMIDE MONOHYDRATE

REACTIONS (1)
  - Bronchitis [Recovered/Resolved]
